FAERS Safety Report 12172767 (Version 1)
Quarter: 2016Q1

REPORT INFORMATION
  Report Type: Spontaneous
  Country: US (occurrence: US)
  Receive Date: 20160311
  Receipt Date: 20160311
  Transmission Date: 20160526
  Serious: Yes (Other)
  Sender: FDA-Public Use
  Company Number: GXBR2016US000883

PATIENT
  Age: 76 Year
  Sex: Female
  Weight: 65.31 kg

DRUGS (4)
  1. TIKOSYN [Interacting]
     Active Substance: DOFETILIDE
     Indication: ATRIAL FIBRILLATION
     Dosage: 250 UG, BID
     Route: 048
     Dates: start: 2013
  2. AMOXICILLIN AND CLAVULANATE POTASSIUM TABLETS USP [Suspect]
     Active Substance: AMOXICILLIN\CLAVULANATE POTASSIUM
     Indication: SINUSITIS
     Dosage: 1 DF, BID
     Route: 048
     Dates: start: 20160212, end: 20160213
  3. REMICADE [Concomitant]
     Active Substance: INFLIXIMAB
     Indication: RHEUMATOID ARTHRITIS
     Dosage: 300 MG IV Q8W
     Route: 042
  4. TIKOSYN [Interacting]
     Active Substance: DOFETILIDE
     Indication: ATRIAL FLUTTER

REACTIONS (4)
  - Drug interaction [Unknown]
  - Atrial fibrillation [Recovered/Resolved]
  - Diarrhoea [Recovered/Resolved]
  - Tachycardia [Recovered/Resolved]

NARRATIVE: CASE EVENT DATE: 20160212
